FAERS Safety Report 25838953 (Version 1)
Quarter: 2025Q3

REPORT INFORMATION
  Report Type: Spontaneous
  Country: EU (occurrence: EU)
  Receive Date: 20250924
  Receipt Date: 20250924
  Transmission Date: 20251020
  Serious: Yes (Life-Threatening, Other)
  Sender: CELLTRION
  Company Number: EU-AMGEN-POLSP2025174863

PATIENT

DRUGS (7)
  1. BEVACIZUMAB [Suspect]
     Active Substance: BEVACIZUMAB
     Indication: Gastrointestinal adenocarcinoma
     Route: 065
  2. VECTIBIX [Suspect]
     Active Substance: PANITUMUMAB
     Indication: Gastrointestinal adenocarcinoma
     Route: 065
  3. VECTIBIX [Suspect]
     Active Substance: PANITUMUMAB
     Route: 065
  4. LEUCOVORIN CALCIUM [Concomitant]
     Active Substance: LEUCOVORIN CALCIUM
     Indication: Gastrointestinal adenocarcinoma
  5. FLUOROURACIL SODIUM [Concomitant]
     Active Substance: FLUOROURACIL SODIUM
     Indication: Gastrointestinal adenocarcinoma
  6. OXALIPLATIN [Concomitant]
     Active Substance: OXALIPLATIN
     Indication: Gastrointestinal adenocarcinoma
  7. IRINOTECAN HYDROCHLORIDE [Concomitant]
     Active Substance: IRINOTECAN HYDROCHLORIDE
     Indication: Gastrointestinal adenocarcinoma

REACTIONS (4)
  - Gastrointestinal adenocarcinoma [Unknown]
  - Rash pustular [Unknown]
  - Therapy partial responder [Unknown]
  - Intentional product use issue [Unknown]
